FAERS Safety Report 11758623 (Version 3)
Quarter: 2016Q1

REPORT INFORMATION
  Report Type: Spontaneous
  Country: DE (occurrence: DE)
  Receive Date: 20151120
  Receipt Date: 20160107
  Transmission Date: 20160525
  Serious: Yes (Life-Threatening, Hospitalization, Other)
  Sender: FDA-Public Use
  Company Number: DE-BAYER-2015-467615

PATIENT
  Age: 76 Year
  Sex: Female
  Weight: 79 kg

DRUGS (3)
  1. ADEMPAS [Suspect]
     Active Substance: RIOCIGUAT
     Indication: PULMONARY HYPERTENSION
     Dosage: UNK
     Dates: start: 201505, end: 201506
  2. ADEMPAS [Suspect]
     Active Substance: RIOCIGUAT
     Indication: PULMONARY HYPERTENSION
     Dosage: 2.5 MG, TID
     Route: 048
     Dates: start: 20150618, end: 2015
  3. XARELTO [Suspect]
     Active Substance: RIVAROXABAN
     Dosage: UNK

REACTIONS (8)
  - Abdominal discomfort [None]
  - Large intestine perforation [None]
  - Peritonitis [None]
  - Peritoneal haemorrhage [None]
  - Sepsis [None]
  - Pain [None]
  - Tumour perforation [None]
  - Hypotension [None]

NARRATIVE: CASE EVENT DATE: 20150830
